FAERS Safety Report 4821499-2 (Version None)
Quarter: 2005Q4

REPORT INFORMATION
  Report Type: 
  Country: None (occurrence: None)
  Receive Date: 20051107
  Receipt Date: 20050922
  Transmission Date: 20060501
  Serious: Yes (Other)
  Sender: FDA-Public Use
  Company Number: GB-GLAXOSMITHKLINE-B0394761A

PATIENT
  Age: 59 Year
  Sex: Female
  Weight: 63.5 kg

DRUGS (2)
  1. ZYBAN [Suspect]
     Indication: DRUG USE FOR UNKNOWN INDICATION
     Route: 048
  2. GAMOLENIC ACID [Concomitant]
     Dosage: 3CAP TWICE PER DAY
     Route: 065

REACTIONS (7)
  - ABNORMAL BEHAVIOUR [None]
  - CONFUSIONAL STATE [None]
  - DISTURBANCE IN ATTENTION [None]
  - HALLUCINATION [None]
  - HEADACHE [None]
  - MOOD SWINGS [None]
  - SUICIDAL IDEATION [None]
